FAERS Safety Report 8721527 (Version 2)
Quarter: 2012Q4

REPORT INFORMATION
  Report Type: 
  Country: CN (occurrence: CN)
  Receive Date: 20120813
  Receipt Date: 20120924
  Transmission Date: 20130627
  Serious: Yes (Hospitalization, Other)
  Sender: FDA-Public Use
  Company Number: CN-ELI_LILLY_AND_COMPANY-CN201206007690

PATIENT
  Age: 42 Year
  Sex: Male
  Weight: 90 kg

DRUGS (4)
  1. BYETTA [Suspect]
     Indication: TYPE 2 DIABETES MELLITUS
     Dosage: 5 ug, bid
     Route: 058
     Dates: start: 20120123
  2. BYETTA [Suspect]
     Dosage: 10 ug, unknown
     Route: 058
     Dates: start: 201203, end: 20120615
  3. MELBIN [Concomitant]
     Indication: TYPE 2 DIABETES MELLITUS
     Dosage: 0.85 DF, bid
     Route: 048
     Dates: start: 200205
  4. VALSARTAN [Concomitant]
     Indication: HYPERTENSION
     Dosage: 80 mg, bid
     Route: 048
     Dates: start: 2005

REACTIONS (2)
  - Diabetic complication [Unknown]
  - Pancreatitis acute [Recovered/Resolved]
